FAERS Safety Report 4560553-X (Version None)
Quarter: 2005Q1

REPORT INFORMATION
  Report Type: 
  Country: None (occurrence: None)
  Receive Date: 20050125
  Receipt Date: 20050118
  Transmission Date: 20050727
  Serious: Yes (Other)
  Sender: FDA-Public Use
  Company Number: JP-GLAXOSMITHKLINE-B0365213A

PATIENT
  Age: 68 Year
  Sex: Female

DRUGS (3)
  1. PAXIL [Suspect]
     Indication: DEPRESSION
     Dosage: 40MG PER DAY
     Route: 048
     Dates: start: 20040730
  2. ERISPAN [Suspect]
     Dosage: .75MG PER DAY
     Route: 048
     Dates: start: 20040809
  3. MERISLON [Concomitant]
     Dosage: 18MG PER DAY
     Route: 048

REACTIONS (1)
  - PARKINSONISM [None]
